FAERS Safety Report 4906443-1 (Version None)
Quarter: 2006Q1

REPORT INFORMATION
  Report Type: 
  Country: None (occurrence: None)
  Receive Date: 20060209
  Receipt Date: 20060124
  Transmission Date: 20060701
  Serious: Yes (Death, Hospitalization)
  Sender: FDA-Public Use
  Company Number: US-BRISTOL-MYERS SQUIBB COMPANY-13275334

PATIENT
  Age: 74 Year
  Sex: Male
  Weight: 69 kg

DRUGS (16)
  1. CETUXIMAB [Suspect]
     Indication: NON-SMALL CELL LUNG CANCER
     Dosage: INITIATED 21-DEC-05(400 MG/M2). THE 4TH + MOST RECENT INFUSION WAS ADMINISTERED ON 17-JAN-2006.
     Route: 042
     Dates: start: 20060117, end: 20060117
  2. PEMETREXED DISODIUM [Suspect]
     Indication: NON-SMALL CELL LUNG CANCER
     Dosage: INITIATED 21-DEC-05.
     Route: 042
     Dates: start: 20060110, end: 20060110
  3. MULTI-VITAMIN [Concomitant]
     Dates: start: 19900101
  4. NORVASC [Concomitant]
     Indication: HYPERTENSION
     Dates: end: 20051223
  5. LUNESTA [Concomitant]
     Indication: INSOMNIA
     Route: 048
     Dates: start: 20050901
  6. MEGACE [Concomitant]
     Indication: DECREASED APPETITE
     Route: 048
     Dates: start: 20050901, end: 20051230
  7. ZOLOFT [Concomitant]
     Indication: DEPRESSION
     Route: 048
     Dates: start: 20051101
  8. AZITHROMYCIN [Concomitant]
     Indication: INFECTION
     Route: 048
     Dates: start: 20051215
  9. FOLIC ACID [Concomitant]
     Route: 048
     Dates: start: 20051215
  10. DEXAMETHASONE [Concomitant]
     Route: 042
     Dates: start: 20051221, end: 20051221
  11. DEXAMETHASONE [Concomitant]
     Route: 042
     Dates: start: 20051220
  12. ROCEPHIN [Concomitant]
     Indication: INFECTION
     Route: 042
     Dates: start: 20051214, end: 20051220
  13. CARDIZEM [Concomitant]
     Indication: HYPERTENSION
     Dates: start: 20051223
  14. AMARYL [Concomitant]
     Indication: HYPERGLYCAEMIA
     Route: 048
     Dates: start: 20051226
  15. AVELOX [Concomitant]
     Indication: PNEUMONIA
     Route: 048
     Dates: start: 20051230, end: 20060105
  16. OXYIR [Concomitant]
     Indication: PAIN
     Route: 048
     Dates: start: 20051213

REACTIONS (5)
  - CEREBRAL ATROPHY [None]
  - CEREBRAL INFARCTION [None]
  - FALL [None]
  - MASTOIDITIS [None]
  - PNEUMONIA [None]
